FAERS Safety Report 20047494 (Version 1)
Quarter: 2021Q4

REPORT INFORMATION
  Report Type: Spontaneous
  Country: NO (occurrence: NO)
  Receive Date: 20211109
  Receipt Date: 20211109
  Transmission Date: 20220303
  Serious: Yes (Other)
  Sender: FDA-Public Use
  Company Number: None

PATIENT
  Sex: Female

DRUGS (9)
  1. HYRIMOZ [Suspect]
     Active Substance: ADALIMUMAB-ADAZ
     Indication: Rheumatoid arthritis
     Dosage: 40 MG (DOSE INCREASED TO 40 MG EVERY 12TH DAY FROM 21 AUG 2020 DUE TO DECLINING EFFECT IN THE LAST P
     Route: 058
     Dates: start: 20200512, end: 20210122
  2. HUMIRA [Suspect]
     Active Substance: ADALIMUMAB
     Indication: Rheumatoid arthritis
     Dosage: 40 MG
     Route: 058
     Dates: start: 20190620, end: 20200512
  3. NAPROXEN [Concomitant]
     Active Substance: NAPROXEN
     Indication: Arthralgia
     Dosage: UNK (250-500 MG 1-2 TIMES PER DAY)
     Route: 048
  4. VAGIFEM [Concomitant]
     Active Substance: ESTRADIOL
     Indication: Product used for unknown indication
     Dosage: 10 UG (3 DAYS, 10 MG TWICE PER WEEK)
     Route: 067
  5. SPIRIVA [Concomitant]
     Active Substance: TIOTROPIUM BROMIDE MONOHYDRATE
     Indication: Asthma
     Dosage: 18 UG, QD
     Route: 055
  6. FILGOTINIB [Concomitant]
     Active Substance: FILGOTINIB
     Indication: Rheumatoid arthritis
     Dosage: 200 MG, QD
     Route: 048
     Dates: start: 202103
  7. ALBUTEROL [Concomitant]
     Active Substance: ALBUTEROL
     Indication: Asthma
     Dosage: UNK (1-2 INHALATIONS (0.2 MG) WHEN NEEDED UP TO X 4)
     Route: 055
  8. OMEPRAZOL BLUEFISH [Concomitant]
     Indication: Gastrooesophageal reflux disease
     Dosage: 20 MG, QD
     Route: 048
  9. SEREVENT DISKUS [Concomitant]
     Active Substance: SALMETEROL XINAFOATE
     Indication: Asthma
     Dosage: 50 UG, Q12H
     Route: 055

REACTIONS (5)
  - Pain [Recovering/Resolving]
  - Radiculopathy [Recovering/Resolving]
  - Pain [Recovering/Resolving]
  - Urinary incontinence [Recovered/Resolved]
  - Muscular weakness [Recovering/Resolving]

NARRATIVE: CASE EVENT DATE: 20190101
